FAERS Safety Report 5630826-8 (Version None)
Quarter: 2008Q1

REPORT INFORMATION
  Report Type: 
  Country: None (occurrence: None)
  Receive Date: 20080219
  Receipt Date: 20080208
  Transmission Date: 20080703
  Serious: Yes (Hospitalization)
  Sender: FDA-Public Use
  Company Number: JP-ROCHE-547046

PATIENT
  Age: 75 Year
  Sex: Male

DRUGS (5)
  1. ROCEPHIN [Suspect]
     Route: 042
  2. PLAVIX [Suspect]
     Indication: DRUG USE FOR UNKNOWN INDICATION
     Route: 048
  3. OZEX [Suspect]
     Indication: DRUG USE FOR UNKNOWN INDICATION
     Route: 065
  4. PENTCILLIN [Suspect]
     Indication: DRUG USE FOR UNKNOWN INDICATION
     Dosage: ROUTE REPORTED AS INJECTABLE (NOS)
     Route: 050
  5. FLOMOX [Suspect]
     Indication: DRUG USE FOR UNKNOWN INDICATION
     Route: 048

REACTIONS (1)
  - PNEUMONIA [None]
